FAERS Safety Report 12005055 (Version 1)
Quarter: 2016Q1

REPORT INFORMATION
  Report Type: Report from Study
  Country: US (occurrence: US)
  Receive Date: 20160204
  Receipt Date: 20160204
  Transmission Date: 20160526
  Serious: No
  Sender: FDA-Public Use
  Company Number: US-ABBVIE-15K-163-1434939-00

PATIENT
  Age: 43 Year
  Sex: Female

DRUGS (1)
  1. HUMIRA [Suspect]
     Active Substance: ADALIMUMAB
     Indication: RHEUMATOID ARTHRITIS
     Route: 065
     Dates: start: 20150707

REACTIONS (3)
  - Injection site pruritus [Unknown]
  - Injection site pain [Recovered/Resolved with Sequelae]
  - Injection site erythema [Unknown]

NARRATIVE: CASE EVENT DATE: 20150721
